FAERS Safety Report 25858449 (Version 1)
Quarter: 2025Q3

REPORT INFORMATION
  Report Type: Report from Study
  Country: US (occurrence: US)
  Receive Date: 20250929
  Receipt Date: 20250929
  Transmission Date: 20251021
  Serious: Yes (Other)
  Sender: MYLAN
  Company Number: US-MYLANLABS-2025M1061109

PATIENT
  Sex: Male

DRUGS (20)
  1. DILANTIN [Interacting]
     Active Substance: PHENYTOIN
     Indication: Epilepsy
     Dosage: 700 MILLIGRAM, PM (BEDTIME)
  2. DILANTIN [Interacting]
     Active Substance: PHENYTOIN
     Dosage: 700 MILLIGRAM, PM (BEDTIME)
  3. DILANTIN [Interacting]
     Active Substance: PHENYTOIN
     Dosage: 700 MILLIGRAM, PM (BEDTIME)
     Route: 048
  4. DILANTIN [Interacting]
     Active Substance: PHENYTOIN
     Dosage: 700 MILLIGRAM, PM (BEDTIME)
     Route: 048
  5. DILANTIN [Interacting]
     Active Substance: PHENYTOIN
     Dosage: 600 MILLIGRAM, PM (BEDTIME)
  6. DILANTIN [Interacting]
     Active Substance: PHENYTOIN
     Dosage: 600 MILLIGRAM, PM (BEDTIME)
  7. DILANTIN [Interacting]
     Active Substance: PHENYTOIN
     Dosage: 600 MILLIGRAM, PM (BEDTIME)
     Route: 048
  8. DILANTIN [Interacting]
     Active Substance: PHENYTOIN
     Dosage: 600 MILLIGRAM, PM (BEDTIME)
     Route: 048
  9. DEPAKOTE [Interacting]
     Active Substance: DIVALPROEX SODIUM
     Indication: Epilepsy
     Dosage: 2500 MILLIGRAM, QD (1500 MG IN THE MORNING AND 1000 MG IN THE NIGHT)
  10. DEPAKOTE [Interacting]
     Active Substance: DIVALPROEX SODIUM
     Dosage: 2500 MILLIGRAM, QD (1500 MG IN THE MORNING AND 1000 MG IN THE NIGHT)
     Route: 065
  11. DEPAKOTE [Interacting]
     Active Substance: DIVALPROEX SODIUM
     Dosage: 2500 MILLIGRAM, QD (1500 MG IN THE MORNING AND 1000 MG IN THE NIGHT)
     Route: 065
  12. DEPAKOTE [Interacting]
     Active Substance: DIVALPROEX SODIUM
     Dosage: 2500 MILLIGRAM, QD (1500 MG IN THE MORNING AND 1000 MG IN THE NIGHT)
  13. VITAMIN D [Concomitant]
     Active Substance: VITAMIN D NOS
     Dosage: UNK, QD (ONCE DAY)
  14. VITAMIN D [Concomitant]
     Active Substance: VITAMIN D NOS
     Dosage: UNK, QD (ONCE DAY)
     Route: 065
  15. VITAMIN D [Concomitant]
     Active Substance: VITAMIN D NOS
     Dosage: UNK, QD (ONCE DAY)
     Route: 065
  16. VITAMIN D [Concomitant]
     Active Substance: VITAMIN D NOS
     Dosage: UNK, QD (ONCE DAY)
  17. TIZANIDINE [Concomitant]
     Active Substance: TIZANIDINE
     Indication: Muscle spasms
  18. TIZANIDINE [Concomitant]
     Active Substance: TIZANIDINE
     Indication: Musculoskeletal stiffness
     Route: 065
  19. TIZANIDINE [Concomitant]
     Active Substance: TIZANIDINE
     Route: 065
  20. TIZANIDINE [Concomitant]
     Active Substance: TIZANIDINE

REACTIONS (5)
  - Seizure [Unknown]
  - Anticonvulsant drug level increased [Unknown]
  - Ammonia increased [Unknown]
  - Prescribed overdose [Unknown]
  - Labelled drug-drug interaction issue [Unknown]
